FAERS Safety Report 4717104-6 (Version None)
Quarter: 2005Q3

REPORT INFORMATION
  Report Type: 
  Country: None (occurrence: None)
  Receive Date: 20050715
  Receipt Date: 20050705
  Transmission Date: 20060218
  Serious: Yes (Life-Threatening)
  Sender: FDA-Public Use
  Company Number: 805#2005-00051

PATIENT
  Age: 0 Year

DRUGS (1)
  1. ALPROSTADIL [Suspect]
     Indication: HEART DISEASE CONGENITAL
     Dosage: 1.10 NG/KG/MIN
     Route: 041

REACTIONS (1)
  - APNOEIC ATTACK [None]
